FAERS Safety Report 8578206-X (Version None)
Quarter: 2012Q3

REPORT INFORMATION
  Report Type: 
  Country: None (occurrence: None)
  Receive Date: 20120808
  Receipt Date: 20120806
  Transmission Date: 20120928
  Serious: No
  Sender: FDA-Public Use
  Company Number: US-PFIZER INC-2012191348

PATIENT
  Age: 77 Year
  Sex: Female
  Weight: 65.76 kg

DRUGS (3)
  1. HYDROCHLOROTHIAZIDE [Concomitant]
     Indication: HYPERTENSION
     Dosage: 12.5 MG, 1X/DAY
  2. ESTRING [Suspect]
     Indication: MENOPAUSAL DISORDER
     Dosage: UNK, EVERY 3 MONTHS
     Route: 067
     Dates: start: 20040101
  3. ESTRING [Suspect]
     Indication: VULVOVAGINAL DRYNESS
     Dosage: UNK
     Route: 067
     Dates: start: 20120701

REACTIONS (3)
  - VULVOVAGINAL DISCOMFORT [None]
  - PRODUCT QUALITY ISSUE [None]
  - DRUG INEFFECTIVE [None]
